FAERS Safety Report 6641589-1 (Version None)
Quarter: 2010Q1

REPORT INFORMATION
  Report Type: 
  Country: None (occurrence: None)
  Receive Date: 20100317
  Receipt Date: 20100317
  Transmission Date: 20100710
  Serious: Yes (Life-Threatening)
  Sender: FDA-Public Use
  Company Number: None

PATIENT
  Age: 53 Year
  Sex: Male
  Weight: 74.8 kg

DRUGS (1)
  1. PIPERACILLIN AND TAZOBACTAM [Suspect]
     Indication: LOCALISED INFECTION
     Dosage: 3.375 GM ONCE IV
     Route: 042
     Dates: start: 20091219, end: 20091219

REACTIONS (3)
  - ANAPHYLACTIC REACTION [None]
  - ELECTROMECHANICAL DISSOCIATION [None]
  - INFUSION RELATED REACTION [None]
